FAERS Safety Report 7043306-2 (Version None)
Quarter: 2010Q4

REPORT INFORMATION
  Report Type: 
  Country: None (occurrence: None)
  Receive Date: 20101013
  Receipt Date: 20091006
  Transmission Date: 20110411
  Serious: No
  Sender: FDA-Public Use
  Company Number: US-ASTRAZENECA-2009SE18245

PATIENT
  Age: 42 Year
  Sex: Female

DRUGS (2)
  1. SYMBICORT [Suspect]
     Dosage: 160/4.5 MCG, 640 MCGS
     Route: 055
     Dates: start: 20090601
  2. SYMBICORT [Suspect]
     Dosage: 160/4.5 MCGS, 960 MCGS
     Route: 055
     Dates: start: 20090601

REACTIONS (2)
  - INCORRECT DOSE ADMINISTERED [None]
  - SINUSITIS [None]
